FAERS Safety Report 5352758-5 (Version None)
Quarter: 2007Q2

REPORT INFORMATION
  Report Type: 
  Country: None (occurrence: None)
  Receive Date: 20070518
  Receipt Date: 20070410
  Transmission Date: 20071010
  Serious: No
  Sender: FDA-Public Use
  Company Number: TPA2007A00782

PATIENT
  Age: 56 Year
  Sex: Female
  Weight: 86.1834 kg

DRUGS (9)
  1. ROZEREM [Suspect]
     Indication: INSOMNIA
     Dosage: 8 MG, QHS, PER ORAL
     Route: 048
     Dates: start: 20070327
  2. CITALOPRAM HBR (CITALOPRAM HYDROBROMIDE) [Concomitant]
  3. ATENOLOL [Concomitant]
  4. FUROSEMIDE (FUROSEMIDE) (PILL) [Concomitant]
  5. DIAZEPAM [Concomitant]
  6. CLONAZEPAM [Concomitant]
  7. VITAMIN (VITAMINS) [Concomitant]
  8. CALCIUM CITRATE (CALCIUM CITRATE) [Concomitant]
  9. DIPHENHYDRAMINE HCL [Concomitant]

REACTIONS (3)
  - DRUG INEFFECTIVE [None]
  - INSOMNIA [None]
  - MIDDLE INSOMNIA [None]
